FAERS Safety Report 10742352 (Version 1)
Quarter: 2015Q1

REPORT INFORMATION
  Report Type: Spontaneous
  Country: US (occurrence: US)
  Receive Date: 20150127
  Receipt Date: 20150127
  Transmission Date: 20150721
  Serious: Yes (Other)
  Sender: FDA-Public Use
  Company Number: US-TEVA-535834USA

PATIENT
  Age: 55 Year
  Sex: Male

DRUGS (9)
  1. CARDURA [Concomitant]
     Active Substance: DOXAZOSIN MESYLATE
  2. CLOZAPINE. [Suspect]
     Active Substance: CLOZAPINE
     Indication: SCHIZOPHRENIA, PARANOID TYPE
  3. FLOMAX [Concomitant]
     Active Substance: TAMSULOSIN HYDROCHLORIDE
  4. PROCARDIA [Concomitant]
     Active Substance: NIFEDIPINE
  5. ALBUTEROL. [Concomitant]
     Active Substance: ALBUTEROL
     Dosage: 2.5 MG/3 ML
  6. CLOZAPINE. [Suspect]
     Active Substance: CLOZAPINE
     Indication: SCHIZOAFFECTIVE DISORDER
     Dosage: 400 MG PER DAY
     Route: 048
     Dates: start: 1995, end: 20141120
  7. PROTONIX [Concomitant]
     Active Substance: PANTOPRAZOLE SODIUM
  8. HALDOL [Concomitant]
     Active Substance: HALOPERIDOL
  9. ADVAIR HFA [Concomitant]
     Active Substance: FLUTICASONE PROPIONATE\SALMETEROL XINAFOATE
     Dosage: 500-50

REACTIONS (9)
  - Small intestinal obstruction [Unknown]
  - Oesophageal stenosis [Unknown]
  - Pyrexia [Unknown]
  - Nausea [Unknown]
  - Abdominal distension [Unknown]
  - Faecaloma [Unknown]
  - Haematemesis [Unknown]
  - Vomiting [Unknown]
  - Intestinal polyp [Unknown]

NARRATIVE: CASE EVENT DATE: 201407
